FAERS Safety Report 15210027 (Version 2)
Quarter: 2018Q3

REPORT INFORMATION
  Report Type: Report from Study
  Country: US (occurrence: US)
  Receive Date: 20180727
  Receipt Date: 20180820
  Transmission Date: 20181010
  Serious: Yes (Hospitalization, Other)
  Sender: FDA-Public Use
  Company Number: US-ACTELION-A-NJ2016-147508

PATIENT
  Age: 55 Year
  Sex: Female

DRUGS (1)
  1. OPSUMIT [Suspect]
     Active Substance: MACITENTAN
     Indication: PULMONARY HYPERTENSION
     Dosage: UNK
     Route: 048
     Dates: start: 20150610

REACTIONS (22)
  - Dyspnoea exertional [Unknown]
  - Right ventricular dysfunction [Unknown]
  - Orthopnoea [Unknown]
  - Chills [Unknown]
  - Pulmonary oedema [Unknown]
  - Hypoxia [Unknown]
  - Dyspnoea paroxysmal nocturnal [Unknown]
  - Sputum discoloured [Unknown]
  - Oedema [Unknown]
  - Oedema peripheral [Unknown]
  - Weight increased [Recovered/Resolved]
  - Headache [Recovered/Resolved]
  - Pyrexia [Unknown]
  - Sinusitis [Unknown]
  - Cough [Recovered/Resolved]
  - Presyncope [Unknown]
  - Productive cough [Unknown]
  - Dizziness exertional [Unknown]
  - Dyspnoea [Not Recovered/Not Resolved]
  - Upper respiratory tract infection [Unknown]
  - Sinus headache [Unknown]
  - Sinus congestion [Recovered/Resolved]

NARRATIVE: CASE EVENT DATE: 2016
